FAERS Safety Report 4541326-0 (Version None)
Quarter: 2004Q4

REPORT INFORMATION
  Report Type: 
  Country: None (occurrence: None)
  Receive Date: 20041229
  Receipt Date: 20041221
  Transmission Date: 20050328
  Serious: Yes (Other)
  Sender: FDA-Public Use
  Company Number: US-MERCK-0412USA02696

PATIENT

DRUGS (1)
  1. COZAAR [Suspect]
     Route: 065

REACTIONS (3)
  - HYPERKALAEMIA [None]
  - OLIGURIA [None]
  - SEPTIC SHOCK [None]
